FAERS Safety Report 12964273 (Version 2)
Quarter: 2017Q1

REPORT INFORMATION
  Report Type: Report from Study
  Country: US (occurrence: US)
  Receive Date: 20161122
  Receipt Date: 20170224
  Transmission Date: 20170428
  Serious: Yes (Other)
  Sender: FDA-Public Use
  Company Number: US-GILEAD-2016-0244386

PATIENT
  Age: 50 Year
  Sex: Female

DRUGS (16)
  1. OXYCODONE [Concomitant]
     Active Substance: OXYCODONE
  2. POTASSIUM [Concomitant]
     Active Substance: POTASSIUM
  3. ALLEGRA-D [Concomitant]
     Active Substance: FEXOFENADINE\PSEUDOEPHEDRINE
  4. LACTULOSE. [Concomitant]
     Active Substance: LACTULOSE
  5. MILK THISTLE PLUS                  /08512201/ [Concomitant]
  6. LORAZEPAM. [Concomitant]
     Active Substance: LORAZEPAM
  7. PANTOPRAZOLE [Concomitant]
     Active Substance: PANTOPRAZOLE SODIUM
  8. AMBRISENTAN [Suspect]
     Active Substance: AMBRISENTAN
     Indication: PULMONARY HYPERTENSION
     Dosage: 5 MG, QD
     Route: 065
     Dates: start: 20151223
  9. SILDENAFIL. [Suspect]
     Active Substance: SILDENAFIL
     Indication: PULMONARY HYPERTENSION
     Route: 065
     Dates: start: 201512
  10. TIZANIDINE. [Concomitant]
     Active Substance: TIZANIDINE
  11. IRON [Concomitant]
     Active Substance: IRON
  12. KLOR-CON [Concomitant]
     Active Substance: POTASSIUM CHLORIDE
  13. VIT E                              /00110501/ [Concomitant]
     Active Substance: TOCOPHEROL
  14. MAGNESIUM [Concomitant]
     Active Substance: MAGNESIUM
  15. EXCEDRIN [Concomitant]
     Active Substance: ACETAMINOPHEN\ASPIRIN\CAFFEINE
  16. LASIX [Concomitant]
     Active Substance: FUROSEMIDE

REACTIONS (9)
  - Blood potassium decreased [Not Recovered/Not Resolved]
  - Swelling face [Not Recovered/Not Resolved]
  - Blood magnesium decreased [Not Recovered/Not Resolved]
  - Lung neoplasm malignant [Not Recovered/Not Resolved]
  - Lung disorder [Not Recovered/Not Resolved]
  - Cardiac disorder [Not Recovered/Not Resolved]
  - Anaemia [Not Recovered/Not Resolved]
  - Pruritus [Not Recovered/Not Resolved]
  - Liver disorder [Not Recovered/Not Resolved]

NARRATIVE: CASE EVENT DATE: 201611
